FAERS Safety Report 5412851-5 (Version None)
Quarter: 2007Q3

REPORT INFORMATION
  Report Type: 
  Country: None (occurrence: None)
  Receive Date: 20070713
  Receipt Date: 20070509
  Transmission Date: 20080115
  Serious: No
  Sender: FDA-Public Use
  Company Number: 2007SP001724

PATIENT
  Sex: Male

DRUGS (5)
  1. LUNESTA [Suspect]
     Dosage: ORAL
     Route: 048
  2. AMBIEN [Suspect]
     Dosage: ORAL
     Route: 048
  3. SONATA [Suspect]
     Dosage: ORAL
     Route: 048
  4. ALCOHOL [Suspect]
     Dosage: ORAL
     Route: 048
  5. TOPROL-XL [Concomitant]

REACTIONS (4)
  - CONFUSIONAL STATE [None]
  - OCULAR HYPERAEMIA [None]
  - PARASOMNIA [None]
  - ROAD TRAFFIC ACCIDENT [None]
